FAERS Safety Report 22216010 (Version 1)
Quarter: 2023Q2

REPORT INFORMATION
  Report Type: Other
  Country: GB (occurrence: GB)
  Receive Date: 20230417
  Receipt Date: 20230417
  Transmission Date: 20230722
  Serious: Yes (Life-Threatening, Hospitalization, Other)
  Sender: FDA-Public Use
  Company Number: GB-CELLTRION INC.-2023GB007884

PATIENT

DRUGS (18)
  1. TRASTUZUMAB [Suspect]
     Active Substance: TRASTUZUMAB
     Indication: Breast cancer metastatic
     Dosage: 600 MG, EVERY 3 WEEKS (CUMULATIVE DOSE TO FIRST REACTION: 31571.428 MG)
     Route: 058
     Dates: start: 20180206
  2. CAPECITABINE [Suspect]
     Active Substance: CAPECITABINE
     Indication: Breast cancer metastatic
     Dosage: 4 G, QD (CUMULATIVE DOSE TO FIRST REACTION: 136.0G)
     Route: 048
     Dates: start: 20210112, end: 20210202
  3. CAPECITABINE [Suspect]
     Active Substance: CAPECITABINE
     Dosage: 3 G, QD (CUMULATIVE DOSE TO FIRST REACTION: 39.0G)
     Route: 048
     Dates: start: 20210202, end: 20210329
  4. EPIRUBICIN [Suspect]
     Active Substance: EPIRUBICIN
     Indication: Breast cancer metastatic
     Dosage: 50 MG, 1/WEEK (CUMULATIVE DOSE TO FIRST REACTION: 456.84525MG)
     Route: 042
     Dates: start: 20210420
  5. EXEMESTANE [Suspect]
     Active Substance: EXEMESTANE
     Indication: Breast cancer metastatic
     Dosage: 25 MG, QD (CUMULATIVE DOSE TO FIRST REACTION: 28675.0MG)
     Route: 048
     Dates: start: 20171226, end: 20180123
  6. EXEMESTANE [Suspect]
     Active Substance: EXEMESTANE
     Dosage: 25 MG, QD (CUMULATIVE DOSE TO FIRST REACTION: 25351.041MG)
     Route: 048
     Dates: start: 20180508, end: 20190521
  7. GOSERELIN [Suspect]
     Active Substance: GOSERELIN
     Indication: Breast cancer metastatic
     Dosage: 3.6 MG, EVERY 4 WEEKS (CUMULATIVE DOSE TO FIRST REACTION: 130.37679MG)
     Route: 058
     Dates: start: 20180508, end: 20190521
  8. GOSERELIN [Suspect]
     Active Substance: GOSERELIN
     Dosage: 3.6 MG, EVERY 4 WEEKS (CUMULATIVE DOSE TO FIRST REACTION: 147.47144MG)
     Route: 058
     Dates: start: 20171226, end: 20180123
  9. LETROZOLE [Suspect]
     Active Substance: LETROZOLE
     Indication: Breast cancer metastatic
     Dosage: 2.5 MG, QD (CUMULATIVE DOSE TO FIRST REACTION: 1587.6041MG)
     Route: 048
     Dates: start: 20190522
  10. NERATINIB [Suspect]
     Active Substance: NERATINIB
     Indication: Breast cancer metastatic
     Dosage: 200 MG, QD (CUMULATIVE DOSE TO FIRST REACTION: 1600.0MG)
     Route: 048
     Dates: start: 20210223, end: 20210329
  11. NERATINIB [Suspect]
     Active Substance: NERATINIB
     Dosage: 240 MG, QD (CUMULATIVE DOSE TO FIRST REACTION: 3120.0MG)
     Route: 048
     Dates: start: 20210202, end: 20210223
  12. PACLITAXEL [Suspect]
     Active Substance: PACLITAXEL
     Indication: Breast cancer metastatic
     Dosage: 156 MG, 1/WEEK (CUMULATIVE DOSE TO FIRST REACTION: 24625.715MG)
     Route: 042
     Dates: start: 20180206, end: 20180227
  13. PACLITAXEL [Suspect]
     Active Substance: PACLITAXEL
     Dosage: 120 MG, 1/WEEK (CUMULATIVE DOSE TO FIRST REACTION:18582.857MG)
     Route: 042
     Dates: start: 20180227, end: 20180508
  14. AMITRIPTYLINE [Concomitant]
     Active Substance: AMITRIPTYLINE
     Dosage: 10 MG, QD (CUMULATIVE DOSE TO FIRST REACTION: 7490.0MG)
     Route: 048
     Dates: start: 20190128
  15. IBUPROFEN [Concomitant]
     Active Substance: IBUPROFEN
     Dosage: 200 MG
     Route: 048
     Dates: start: 201803
  16. LOPERAMIDE [Concomitant]
     Active Substance: LOPERAMIDE
     Dosage: 2 MG
     Route: 048
     Dates: start: 20190726
  17. ACETAMINOPHEN [Concomitant]
     Active Substance: ACETAMINOPHEN
     Dosage: 1 G
     Route: 048
     Dates: start: 201803
  18. ZOMETA [Concomitant]
     Active Substance: ZOLEDRONIC ACID
     Dosage: 4 MG
     Route: 042
     Dates: start: 20180213

REACTIONS (3)
  - Neutropenia [Recovered/Resolved]
  - Neutropenic sepsis [Recovered/Resolved]
  - Off label use [Unknown]

NARRATIVE: CASE EVENT DATE: 20210215
